FAERS Safety Report 6573425-6 (Version None)
Quarter: 2010Q1

REPORT INFORMATION
  Report Type: 
  Country: None (occurrence: None)
  Receive Date: 20100204
  Receipt Date: 20100204
  Transmission Date: 20100710
  Serious: Yes (Other)
  Sender: FDA-Public Use
  Company Number: None

PATIENT
  Age: 51 Year
  Sex: Female
  Weight: 63.5036 kg

DRUGS (1)
  1. LEVAQUIN [Suspect]
     Indication: EAR PAIN
     Dosage: 10 1X 10 DAY DOSAGE COMPLETED THE DOSAGE
     Dates: start: 20091224

REACTIONS (9)
  - ARTHRALGIA [None]
  - BONE DISORDER [None]
  - DIZZINESS [None]
  - INSOMNIA [None]
  - MUSCULAR WEAKNESS [None]
  - PAIN IN EXTREMITY [None]
  - PALPITATIONS [None]
  - TENDON PAIN [None]
  - UNEVALUABLE EVENT [None]
